FAERS Safety Report 19286585 (Version 4)
Quarter: 2021Q2

REPORT INFORMATION
  Report Type: Spontaneous
  Country: GR (occurrence: GR)
  Receive Date: 20210521
  Receipt Date: 20210610
  Transmission Date: 20210717
  Serious: Yes (Life-Threatening, Other)
  Sender: FDA-Public Use
  Company Number: GR-JNJFOC-20210528169

PATIENT
  Age: 42 Year
  Sex: Female
  Weight: 68 kg

DRUGS (3)
  1. TOPAMAC [Suspect]
     Active Substance: TOPIRAMATE
     Indication: EPILEPSY
     Dosage: UNK
     Route: 048
     Dates: start: 20141120, end: 201502
  2. STILNOX [Suspect]
     Active Substance: ZOLPIDEM TARTRATE
     Indication: EPILEPSY
     Dosage: UNK
     Route: 065
  3. DEPAKINE CHRONO [Suspect]
     Active Substance: VALPROATE SODIUM
     Indication: PRODUCT USED FOR UNKNOWN INDICATION
     Dosage: 500 MG
     Route: 065

REACTIONS (4)
  - Balance disorder [Unknown]
  - Blindness transient [Recovered/Resolved]
  - Gait disturbance [Unknown]
  - Fall [Unknown]
